FAERS Safety Report 5702499-7 (Version None)
Quarter: 2008Q2

REPORT INFORMATION
  Report Type: 
  Country: None (occurrence: None)
  Receive Date: 20080410
  Receipt Date: 20080410
  Transmission Date: 20081010
  Serious: Yes (Hospitalization, Other)
  Sender: FDA-Public Use
  Company Number: None

PATIENT
  Sex: Male
  Weight: 58.2 kg

DRUGS (1)
  1. MINOCYCLINE HCL [Suspect]
     Indication: ACNE
     Dosage: PO
     Route: 048
     Dates: start: 20080221, end: 20080321

REACTIONS (16)
  - ASCITES [None]
  - BLOOD LACTATE DEHYDROGENASE INCREASED [None]
  - DRY SKIN [None]
  - GENERALISED OEDEMA [None]
  - HEADACHE [None]
  - HEPATITIS [None]
  - HYPOTENSION [None]
  - LYMPHADENOPATHY [None]
  - MYALGIA [None]
  - PALPABLE PURPURA [None]
  - RASH PRURITIC [None]
  - SPLENOMEGALY [None]
  - SYNCOPE [None]
  - VASCULITIS [None]
  - VIRAL INFECTION [None]
  - VOMITING [None]
